FAERS Safety Report 4654731-9 (Version None)
Quarter: 2005Q2

REPORT INFORMATION
  Report Type: 
  Country: None (occurrence: None)
  Receive Date: 20050505
  Receipt Date: 20050505
  Transmission Date: 20051028
  Serious: Yes (Other)
  Sender: FDA-Public Use
  Company Number: None

PATIENT
  Sex: Male
  Weight: 79.8331 kg

DRUGS (6)
  1. FENTANYL    100 MCG/HOUR    GENERIC [Suspect]
     Indication: BACK PAIN
     Dosage: 1     EVERY 48 HOURS    TRANSDERMA
     Route: 062
     Dates: start: 20050409, end: 20050504
  2. FENTANYL    100 MCG/HOUR    GENERIC [Suspect]
     Indication: FIBROMYALGIA
     Dosage: 1     EVERY 48 HOURS    TRANSDERMA
     Route: 062
     Dates: start: 20050409, end: 20050504
  3. FENTANYL    100 MCG/HOUR    GENERIC [Suspect]
     Indication: PAIN IN EXTREMITY
     Dosage: 1     EVERY 48 HOURS    TRANSDERMA
     Route: 062
     Dates: start: 20050409, end: 20050504
  4. FENTANYL    25 MCG/HOUR     GENERIC [Suspect]
     Indication: BACK PAIN
     Dosage: 1    EVERY 48 HOURS    TRANSDERMAL
     Route: 062
     Dates: start: 20050409, end: 20050504
  5. FENTANYL    25 MCG/HOUR     GENERIC [Suspect]
     Indication: FIBROMYALGIA
     Dosage: 1    EVERY 48 HOURS    TRANSDERMAL
     Route: 062
     Dates: start: 20050409, end: 20050504
  6. FENTANYL    25 MCG/HOUR     GENERIC [Suspect]
     Indication: PAIN IN EXTREMITY
     Dosage: 1    EVERY 48 HOURS    TRANSDERMAL
     Route: 062
     Dates: start: 20050409, end: 20050504

REACTIONS (2)
  - DRUG EFFECT DECREASED [None]
  - THERAPEUTIC RESPONSE UNEXPECTED WITH DRUG SUBSTITUTION [None]
